FAERS Safety Report 15427846 (Version 1)
Quarter: 2018Q3

REPORT INFORMATION
  Report Type: Report from Study
  Country: US (occurrence: US)
  Receive Date: 20180926
  Receipt Date: 20180926
  Transmission Date: 20181010
  Serious: Yes (Other)
  Sender: FDA-Public Use
  Company Number: US-ROCHE-2186477

PATIENT
  Sex: Male
  Weight: 55.8 kg

DRUGS (12)
  1. MAG?OX [Concomitant]
     Active Substance: MAGNESIUM OXIDE
     Route: 048
  2. ADALAT CC [Concomitant]
     Active Substance: NIFEDIPINE
     Route: 048
  3. LOPRESSOR [Concomitant]
     Active Substance: METOPROLOL TARTRATE
     Route: 048
  4. PROGRAF [Concomitant]
     Active Substance: TACROLIMUS\TACROLIMUS ANHYDROUS
     Route: 048
  5. KEPPRA [Concomitant]
     Active Substance: LEVETIRACETAM
     Route: 048
  6. LEVOTHYROXINE. [Concomitant]
     Active Substance: LEVOTHYROXINE
     Route: 048
  7. DELTASONE [Concomitant]
     Active Substance: PREDNISONE
     Route: 048
  8. CELLCEPT [Suspect]
     Active Substance: MYCOPHENOLATE MOFETIL\MYCOPHENOLATE MOFETIL HYDROCHLORIDE
     Indication: LIVER TRANSPLANT
     Dosage: PER MDO NOTES
     Route: 048
  9. ZYRTEC?D [Concomitant]
     Active Substance: CETIRIZINE HYDROCHLORIDE\PSEUDOEPHEDRINE HYDROCHLORIDE
     Dosage: EVERY MORNING
     Route: 048
  10. FLONASE [Concomitant]
     Active Substance: FLUTICASONE PROPIONATE
     Route: 045
  11. NEURONTIN [Concomitant]
     Active Substance: GABAPENTIN
     Route: 048
  12. ESOMEPRAZOLE MAGNESIUM. [Concomitant]
     Active Substance: ESOMEPRAZOLE MAGNESIUM
     Dosage: EVERY MORNING
     Route: 048

REACTIONS (9)
  - Eye discharge [Unknown]
  - Alanine aminotransferase increased [Unknown]
  - Deafness [Unknown]
  - Varices oesophageal [Unknown]
  - Aspartate aminotransferase increased [Unknown]
  - Seizure [Unknown]
  - Hepatic cirrhosis [Unknown]
  - Blood alkaline phosphatase increased [Unknown]
  - Amnesia [Unknown]
